FAERS Safety Report 15791341 (Version 1)
Quarter: 2019Q1

REPORT INFORMATION
  Report Type: Spontaneous
  Country: CN (occurrence: CN)
  Receive Date: 20190104
  Receipt Date: 20190104
  Transmission Date: 20190417
  Serious: Yes (Disabling)
  Sender: FDA-Public Use
  Company Number: PHHY2018CN199031

PATIENT
  Age: 63 Year
  Sex: Female
  Weight: 35 kg

DRUGS (2)
  1. TEGRETOL [Suspect]
     Active Substance: CARBAMAZEPINE
     Indication: NEURALGIA
     Dosage: 400 MG, QD
     Route: 048
     Dates: start: 20181026, end: 20181102
  2. METHYCOBAL [Suspect]
     Active Substance: METHYLCOBALAMIN
     Indication: NUTRITIONAL SUPPLEMENTATION
     Dosage: 0.56 MG, TID
     Route: 048
     Dates: start: 20181026, end: 20181102

REACTIONS (6)
  - Pyrexia [Recovering/Resolving]
  - Mouth ulceration [Recovering/Resolving]
  - Pharyngitis [Recovering/Resolving]
  - Conjunctival hyperaemia [Recovering/Resolving]
  - Rash [Recovering/Resolving]
  - Conjunctival oedema [Recovering/Resolving]

NARRATIVE: CASE EVENT DATE: 20181102
